FAERS Safety Report 16775816 (Version 1)
Quarter: 2019Q3

REPORT INFORMATION
  Report Type: Spontaneous
  Country: ZA (occurrence: ZA)
  Receive Date: 20190905
  Receipt Date: 20190905
  Transmission Date: 20191005
  Serious: Yes (Other)
  Sender: FDA-Public Use
  Company Number: ZA-ASTRAZENECA-2019SF24146

PATIENT
  Age: 35 Year
  Sex: Female

DRUGS (5)
  1. INDAPAMIDE. [Concomitant]
     Active Substance: INDAPAMIDE
  2. FORXIGA [Suspect]
     Active Substance: DAPAGLIFLOZIN
     Indication: TYPE 2 DIABETES MELLITUS
     Route: 048
  3. ENALAPRIL [Concomitant]
     Active Substance: ENALAPRIL
  4. METFORMIN [Concomitant]
     Active Substance: METFORMIN HYDROCHLORIDE
     Dosage: 850MG BD
  5. DIAGLUCIDE [Concomitant]
     Active Substance: GLICLAZIDE
     Dosage: 80MG BD

REACTIONS (1)
  - Palpitations [Recovered/Resolved]
